FAERS Safety Report 8024998-8 (Version None)
Quarter: 2012Q1

REPORT INFORMATION
  Report Type: 
  Country: None (occurrence: None)
  Receive Date: 20120105
  Receipt Date: 20111227
  Transmission Date: 20120608
  Serious: Yes (Other)
  Sender: FDA-Public Use
  Company Number: FR-JNJFOC-20111212002

PATIENT
  Sex: Male

DRUGS (12)
  1. HEMISUCCINATE HYDROCORTISONE [Concomitant]
  2. MICONAZOLE [Suspect]
     Route: 048
  3. ALFUZOSIN HCL [Concomitant]
  4. VITAMIN B1 TAB [Concomitant]
  5. MYAMBUTOL [Suspect]
     Route: 048
     Dates: start: 20110101, end: 20111101
  6. CLARITHROMYCIN [Suspect]
     Route: 048
     Dates: start: 20111129, end: 20111130
  7. VITAMIN B6 [Concomitant]
  8. MICONAZOLE [Suspect]
     Indication: PRODUCT USED FOR UNKNOWN INDICATION
     Route: 048
     Dates: start: 20111127, end: 20111129
  9. CLARITHROMYCIN [Suspect]
     Route: 048
     Dates: start: 20110101, end: 20111101
  10. DOTAREM [Concomitant]
     Route: 042
     Dates: start: 20111125, end: 20111125
  11. MYAMBUTOL [Suspect]
     Indication: PRODUCT USED FOR UNKNOWN INDICATION
     Route: 048
     Dates: start: 20111129, end: 20111130
  12. CLARITHROMYCIN [Suspect]
     Indication: PRODUCT USED FOR UNKNOWN INDICATION
     Route: 048
     Dates: start: 20111118, end: 20111124

REACTIONS (2)
  - PANCYTOPENIA [None]
  - AGRANULOCYTOSIS [None]
